FAERS Safety Report 24192602 (Version 4)
Quarter: 2024Q4

REPORT INFORMATION
  Report Type: Report from Study
  Country: IN (occurrence: IN)
  Receive Date: 20240809
  Receipt Date: 20241213
  Transmission Date: 20250115
  Serious: Yes (Other)
  Sender: ROCHE
  Company Number: IN-ROCHE-10000051187

PATIENT
  Age: 68 Year
  Sex: Male
  Weight: 52.1 kg

DRUGS (1)
  1. TECENTRIQ [Suspect]
     Active Substance: ATEZOLIZUMAB
     Indication: Hepatocellular carcinoma
     Route: 042
     Dates: start: 20240610

REACTIONS (8)
  - Neoplasm progression [Unknown]
  - Hypotension [Unknown]
  - Off label use [Unknown]
  - Haemoglobin decreased [Unknown]
  - Blood pressure diastolic decreased [Unknown]
  - Haemangioma [Unknown]
  - Collateral circulation [Unknown]
  - Atrophy [Unknown]
